FAERS Safety Report 9731539 (Version 1)
Quarter: 2013Q4

REPORT INFORMATION
  Report Type: Spontaneous
  Country: CA (occurrence: CA)
  Receive Date: 20131205
  Receipt Date: 20131205
  Transmission Date: 20140711
  Serious: Yes (Hospitalization)
  Sender: FDA-Public Use
  Company Number: PHHY2013CA137866

PATIENT
  Age: 75 Year
  Sex: Female

DRUGS (7)
  1. CLARITHROMYCIN [Suspect]
     Dosage: 500 MG, BID
  2. CLARITHROMYCIN [Suspect]
     Indication: PNEUMONIA
     Dosage: 1 G, Q24H
     Route: 042
  3. CEFTRIAXONE [Concomitant]
     Indication: PNEUMONIA
     Dosage: 2 G, Q24H
     Route: 042
  4. METOPROLOL [Concomitant]
     Dosage: 25 MG, BID
  5. LOSARTAN HCT [Concomitant]
     Dosage: 1 DF, QD
  6. CRESTOR [Concomitant]
     Dosage: 40 MG, DAILY
  7. PLAVIX [Concomitant]
     Dosage: 75 MG, DAILY

REACTIONS (9)
  - Ventricular fibrillation [Unknown]
  - Unresponsive to stimuli [Unknown]
  - Cardiac arrest [Unknown]
  - Torsade de pointes [Unknown]
  - Electrocardiogram QT prolonged [Unknown]
  - Presyncope [Unknown]
  - Nausea [Unknown]
  - Malaise [Unknown]
  - Asthenia [Unknown]
